FAERS Safety Report 14392162 (Version 2)
Quarter: 2018Q3

REPORT INFORMATION
  Report Type: Report from Study
  Country: FR (occurrence: FR)
  Receive Date: 20180116
  Receipt Date: 20180814
  Transmission Date: 20181010
  Serious: Yes (Hospitalization)
  Sender: FDA-Public Use
  Company Number: FR-TEVA-2018-FR-846705

PATIENT
  Age: 73 Year
  Sex: Female

DRUGS (6)
  1. SMECTA (DIOSMECTITE) [Concomitant]
     Indication: DIARRHOEA
     Dosage: 3 G, AS NECESSARY
     Dates: start: 20171106
  2. LEVOTHYROX [Concomitant]
     Active Substance: LEVOTHYROXINE
     Indication: HYPOTHYROIDISM
     Dosage: 100 MUG, QD
     Dates: start: 2017
  3. MITOMYCIN. [Suspect]
     Active Substance: MITOMYCIN
     Indication: SQUAMOUS CELL CARCINOMA
     Dosage: 17.5 MG, UNK
     Route: 065
     Dates: start: 20171023
  4. PANITUMUMAB SOLUTION FOR INJECTION [Suspect]
     Active Substance: PANITUMUMAB
     Indication: SQUAMOUS CELL CARCINOMA
     Dosage: 196 MG, UNK
     Route: 065
     Dates: start: 20171023
  5. 5?FU [Suspect]
     Active Substance: FLUOROURACIL
     Indication: SQUAMOUS CELL CARCINOMA
     Dosage: 2750 MG, UNK
     Route: 065
     Dates: start: 20171023
  6. OFLOXACIN. [Concomitant]
     Active Substance: OFLOXACIN
     Indication: URINARY TRACT INFECTION
     Dosage: 400 MG, UNK
     Dates: start: 20171120, end: 20171124

REACTIONS (1)
  - General physical health deterioration [Recovering/Resolving]

NARRATIVE: CASE EVENT DATE: 20171127
